FAERS Safety Report 5490902-X (Version None)
Quarter: 2007Q4

REPORT INFORMATION
  Report Type: 
  Country: None (occurrence: None)
  Receive Date: 20071019
  Receipt Date: 20071005
  Transmission Date: 20080405
  Serious: Yes (Disabling, Other)
  Sender: FDA-Public Use
  Company Number: GB-RANBAXY-2007RR-10034

PATIENT

DRUGS (2)
  1. CLARITHROMYCIN 250MG TABLETS [Suspect]
     Indication: LOWER RESPIRATORY TRACT INFECTION
     Dosage: 250 MG, BID
  2. WARFARIN SODIUM [Suspect]
     Indication: ANTICOAGULANT THERAPY

REACTIONS (4)
  - CHOROIDAL HAEMORRHAGE [None]
  - DRUG INTERACTION [None]
  - EYE HAEMORRHAGE [None]
  - HYPHAEMA [None]
